FAERS Safety Report 4325542-9 (Version None)
Quarter: 2004Q1

REPORT INFORMATION
  Report Type: 
  Country: None (occurrence: None)
  Receive Date: 20040324
  Receipt Date: 20040206
  Transmission Date: 20041129
  Serious: Yes (Death)
  Sender: FDA-Public Use
  Company Number: 200208-1774

PATIENT
  Age: 3 Month
  Sex: Female
  Weight: 7.2576 kg

DRUGS (1)
  1. BENADRYL [Suspect]
     Indication: INTENTIONAL OVERDOSE
     Dosage: MORE THAN 12 TEASPOONS, ORAL
     Route: 048

REACTIONS (4)
  - MEDICATION ERROR [None]
  - OVERDOSE [None]
  - THERAPEUTIC AGENT TOXICITY [None]
  - VICTIM OF HOMICIDE [None]
